FAERS Safety Report 5745002-8 (Version None)
Quarter: 2008Q2

REPORT INFORMATION
  Report Type: 
  Country: None (occurrence: None)
  Receive Date: 20080521
  Receipt Date: 20080519
  Transmission Date: 20081010
  Serious: Yes (Life-Threatening, Hospitalization)
  Sender: FDA-Public Use
  Company Number: DE-ELI_LILLY_AND_COMPANY-DE200804002047

PATIENT
  Age: 78 Year
  Sex: Male

DRUGS (4)
  1. ZYPREXA [Suspect]
     Indication: DELIRIUM
     Dosage: 2.5 MG, 2/D
     Route: 048
     Dates: start: 20080328, end: 20080402
  2. ANTIBIOTICS [Concomitant]
     Indication: RESPIRATORY TRACT INFECTION
     Dosage: UNK, UNK
     Dates: end: 20080328
  3. HALDOL [Concomitant]
     Dosage: 0.5 MG, 2/D
     Dates: end: 20080329
  4. DIAZEPAM [Concomitant]
     Dosage: 5 MG, DAILY (1/D)
     Dates: end: 20080329

REACTIONS (2)
  - OEDEMA PERIPHERAL [None]
  - RHABDOMYOLYSIS [None]
